FAERS Safety Report 15701192 (Version 1)
Quarter: 2018Q4

REPORT INFORMATION
  Report Type: Spontaneous
  Country: US (occurrence: US)
  Receive Date: 20181207
  Receipt Date: 20181207
  Transmission Date: 20190205
  Serious: Yes (Hospitalization)
  Sender: FDA-Public Use
  Company Number: US-FRESENIUS MEDICAL CARE RENAL THERAPIES GROUP-FMC-1811-002038

PATIENT
  Sex: Female
  Weight: 59 kg

DRUGS (11)
  1. CALCITRIOL. [Concomitant]
     Active Substance: CALCITRIOL
  2. NOVOLOG [Concomitant]
     Active Substance: INSULIN ASPART
  3. ASPRIN [Concomitant]
     Active Substance: ASPIRIN
  4. DELFLEX [Suspect]
     Active Substance: CALCIUM CHLORIDE\DEXTROSE\MAGNESIUM CHLORIDE\SODIUM CHLORIDE\SODIUM LACTATE
     Indication: END STAGE RENAL DISEASE
     Route: 033
  5. ALBUTEROL. [Concomitant]
     Active Substance: ALBUTEROL
  6. RANITIDINE. [Concomitant]
     Active Substance: RANITIDINE
  7. ONDANSETRON [Concomitant]
     Active Substance: ONDANSETRON
  8. METOCLOPRAMIDE. [Concomitant]
     Active Substance: METOCLOPRAMIDE
  9. ATORVASTATIN [Concomitant]
     Active Substance: ATORVASTATIN
  10. PANTOPRAZOLE [Concomitant]
     Active Substance: PANTOPRAZOLE
  11. AMLODIPINE [Concomitant]
     Active Substance: AMLODIPINE BESYLATE

REACTIONS (2)
  - Fluid overload [Recovered/Resolved]
  - Product dose omission [Recovered/Resolved]
